FAERS Safety Report 23059513 (Version 1)
Quarter: 2023Q4

REPORT INFORMATION
  Report Type: Spontaneous
  Country: US (occurrence: US)
  Receive Date: 20231012
  Receipt Date: 20231012
  Transmission Date: 20240109
  Serious: Yes (Death, Life-Threatening, Hospitalization)
  Sender: FDA-Public Use
  Company Number: US-MYLANLABS-2023M1106705

PATIENT
  Age: 63 Year
  Sex: Female

DRUGS (4)
  1. ASCORBIC ACID [Suspect]
     Active Substance: ASCORBIC ACID
     Indication: Methaemoglobinaemia
     Dosage: UNK
     Route: 065
  2. METHYLENE BLUE [Suspect]
     Active Substance: METHYLENE BLUE
     Indication: Methaemoglobinaemia
     Dosage: UNK
     Route: 065
  3. NITRIC OXIDE [Concomitant]
     Active Substance: NITRIC OXIDE
     Indication: Cor pulmonale
     Dosage: 20 PPM (RESPIRATORY (INHALATION) ROUTE)
     Route: 055
  4. NITRIC OXIDE [Concomitant]
     Active Substance: NITRIC OXIDE
     Dosage: 10 PPM (RESPIRATORY (INHALATION) ROUTE)
     Route: 055

REACTIONS (3)
  - Hypotension [Fatal]
  - Drug ineffective for unapproved indication [Unknown]
  - Off label use [Unknown]
